FAERS Safety Report 6086414-5 (Version None)
Quarter: 2009Q1

REPORT INFORMATION
  Report Type: 
  Country: None (occurrence: None)
  Receive Date: 20090217
  Receipt Date: 20090202
  Transmission Date: 20090719
  Serious: Yes (Death)
  Sender: FDA-Public Use
  Company Number: CHPA2009US01789

PATIENT
  Age: 61 Year
  Sex: Female

DRUGS (8)
  1. ACETAMINOPHEN [Suspect]
     Dosage: ORAL
     Route: 048
  2. ACETAMINOPHEN W/ CODEINE [Suspect]
     Dosage: ORAL
     Route: 048
  3. OXYCODONE HCL [Suspect]
     Dosage: ORAL
     Route: 048
  4. ESCITALOPRAM [Suspect]
     Dosage: ORAL
     Route: 048
  5. LEVOTHYROXINE SODIUM [Suspect]
     Dosage: ORAL
     Route: 048
  6. THIAZIDES (NO INGREDIENTS/SUBSTANCES) [Suspect]
     Dosage: ORAL
     Route: 048
  7. ESTRADIOL [Suspect]
     Dosage: ORAL
     Route: 048
  8. PROGESTIN INJ [Suspect]

REACTIONS (2)
  - COMPLETED SUICIDE [None]
  - POISONING DELIBERATE [None]
